FAERS Safety Report 7056670-5 (Version None)
Quarter: 2010Q4

REPORT INFORMATION
  Report Type: 
  Country: None (occurrence: None)
  Receive Date: 20101021
  Receipt Date: 20101008
  Transmission Date: 20110411
  Serious: Yes (Hospitalization, Other)
  Sender: FDA-Public Use
  Company Number: GB-AMGEN INC.-QUU363812

PATIENT

DRUGS (9)
  1. NEULASTA [Suspect]
     Indication: CHEMOTHERAPY
     Dosage: 6 MG, Q3WK
     Route: 058
     Dates: start: 20080722
  2. NEUPOGEN [Suspect]
     Indication: CHEMOTHERAPY
     Dosage: UNK UNK, UNK
     Route: 058
  3. BEVACIZUMAB [Suspect]
     Dosage: 1287.5 MG, Q3WK
     Route: 042
     Dates: start: 20090721
  4. PHENYTOIN [Suspect]
     Dosage: 50 MG, UNK
     Dates: end: 20090814
  5. CARBOPLATIN [Concomitant]
     Dosage: 50 MG, Q3WK
     Route: 042
     Dates: start: 20090721
  6. ONDANSETRON [Concomitant]
     Dosage: 8 MG, BID
     Route: 048
     Dates: start: 20090721
  7. METOCLOPRAMIDE [Concomitant]
     Dosage: 10 MG, PRN
     Route: 048
     Dates: start: 20090721
  8. DEXAMETHASONE [Concomitant]
     Dosage: 6 MG, UNK
     Route: 048
  9. VALPROATE SODIUM [Concomitant]

REACTIONS (8)
  - BODY TEMPERATURE INCREASED [None]
  - CONFUSIONAL STATE [None]
  - CYTOKINE STORM [None]
  - DEEP VEIN THROMBOSIS [None]
  - DELIRIUM [None]
  - DERMATITIS ALLERGIC [None]
  - IMPETIGO [None]
  - PETECHIAE [None]
